FAERS Safety Report 12168210 (Version 1)
Quarter: 2016Q1

REPORT INFORMATION
  Report Type: Spontaneous
  Country: US (occurrence: US)
  Receive Date: 20160310
  Receipt Date: 20160310
  Transmission Date: 20160526
  Serious: No
  Sender: FDA-Public Use
  Company Number: US-GE HEALTHCARE MEDICAL DIAGNOSTICS-CRTC-PR-1310S-0016

PATIENT

DRUGS (2)
  1. CERETEC [Suspect]
     Active Substance: TECHNETIUM TC-99M EXAMETAZIME
     Indication: PRODUCT USED FOR UNKNOWN INDICATION
     Dosage: DOSE NOT REPORTED
     Route: 065
  2. CERETEC [Suspect]
     Active Substance: TECHNETIUM TC-99M EXAMETAZIME
     Indication: DIAGNOSTIC PROCEDURE

REACTIONS (3)
  - Radioisotope scan abnormal [Recovered/Resolved]
  - Drug ineffective [Recovered/Resolved]
  - No adverse event [Recovered/Resolved]
